FAERS Safety Report 8759672 (Version 2)
Quarter: 2012Q4

REPORT INFORMATION
  Report Type: Report from Study
  Country: JP (occurrence: JP)
  Receive Date: 20120830
  Receipt Date: 20120920
  Transmission Date: 20130627
  Serious: Yes (Death, Hospitalization)
  Sender: FDA-Public Use
  Company Number: JP-ROCHE-1108735

PATIENT
  Age: 81 Year
  Sex: Male
  Weight: 61 kg

DRUGS (18)
  1. MIRCERA [Suspect]
     Indication: NEPHROGENIC ANAEMIA
     Route: 058
     Dates: start: 20110906, end: 20120327
  2. PREDNISOLONE [Concomitant]
     Indication: RHEUMATOID ARTHRITIS
     Route: 048
  3. CELECOX [Concomitant]
     Indication: RHEUMATOID ARTHRITIS
     Route: 048
  4. MOHRUS TAPE [Concomitant]
     Indication: RHEUMATOID ARTHRITIS
     Route: 061
  5. ALFAROL [Concomitant]
     Route: 048
  6. CONIEL [Concomitant]
     Indication: HYPERTENSION
     Route: 048
  7. TAKEPRON [Concomitant]
     Route: 048
  8. ZYLORIC [Concomitant]
     Indication: HYPERTENSION
     Route: 048
  9. LASIX [Concomitant]
     Indication: HYPERTENSION
     Route: 048
     Dates: end: 20120412
  10. LASIX [Concomitant]
     Route: 048
     Dates: start: 20120413, end: 20120416
  11. LASIX [Concomitant]
     Route: 048
     Dates: start: 20120417, end: 20120419
  12. LASIX [Concomitant]
     Route: 048
     Dates: start: 20120420
  13. SODIUM BICARBONATE [Concomitant]
     Route: 048
  14. NEORAL [Concomitant]
     Indication: NEPHROTIC SYNDROME
     Route: 048
  15. NEORAL [Concomitant]
     Indication: NEPHROTIC SYNDROME
     Route: 048
     Dates: start: 20120413
  16. KALIMATE [Concomitant]
     Route: 048
  17. NATRIX [Concomitant]
     Indication: HYPERTENSION
     Route: 048
  18. LAXOBERON [Concomitant]
     Indication: CONSTIPATION
     Dosage: At the obstipation
     Route: 048

REACTIONS (5)
  - Cardiac failure chronic [Fatal]
  - Renal impairment [Fatal]
  - Anaemia [Fatal]
  - Bronchitis [Unknown]
  - Oral candidiasis [Unknown]
